FAERS Safety Report 7917779-4 (Version None)
Quarter: 2011Q4

REPORT INFORMATION
  Report Type: 
  Country: None (occurrence: None)
  Receive Date: 20111116
  Receipt Date: 20111102
  Transmission Date: 20120403
  Serious: Yes (Life-Threatening, Hospitalization)
  Sender: FDA-Public Use
  Company Number: DE-ROCHE-1011757

PATIENT
  Age: 75 Year
  Sex: Male
  Weight: 97.111 kg

DRUGS (9)
  1. CLOPIDOGREL [Concomitant]
     Dates: start: 20000101
  2. FUROSEMIDE [Suspect]
     Indication: PRODUCT USED FOR UNKNOWN INDICATION
     Route: 048
     Dates: start: 20100201, end: 20110815
  3. ALLOPURINOL [Suspect]
     Indication: PRODUCT USED FOR UNKNOWN INDICATION
     Route: 048
     Dates: start: 20070101, end: 20110815
  4. INSULIN BASAL [Concomitant]
     Dates: start: 19950101
  5. HUMAN INSULIN [Concomitant]
     Dates: start: 19950101
  6. RAMIPRIL [Concomitant]
     Dates: start: 19950101, end: 20110815
  7. LUCENTIS [Suspect]
     Indication: MACULAR DEGENERATION
     Route: 050
     Dates: start: 20110707
  8. AVODART [Suspect]
     Indication: BENIGN PROSTATIC HYPERPLASIA
     Route: 048
     Dates: start: 20090101, end: 20110815
  9. ESCOR [Concomitant]
     Dates: start: 19950101, end: 20110815

REACTIONS (4)
  - RENAL FAILURE ACUTE [None]
  - FIBRIN D DIMER INCREASED [None]
  - DYSPNOEA [None]
  - TUBULOINTERSTITIAL NEPHRITIS [None]
